FAERS Safety Report 22376283 (Version 1)
Quarter: 2023Q2

REPORT INFORMATION
  Report Type: Spontaneous
  Country: GR (occurrence: GR)
  Receive Date: 20230527
  Receipt Date: 20230527
  Transmission Date: 20230722
  Serious: Yes (Hospitalization)
  Sender: FDA-Public Use
  Company Number: GR-STRIDES ARCOLAB LIMITED-2023SP007363

PATIENT
  Age: 48 Year
  Sex: Female

DRUGS (4)
  1. FINGOLIMOD [Suspect]
     Active Substance: FINGOLIMOD
     Indication: Relapsing-remitting multiple sclerosis
     Dosage: UNK
     Route: 065
  2. METHYLPREDNISOLONE [Suspect]
     Active Substance: METHYLPREDNISOLONE
     Indication: Relapsing-remitting multiple sclerosis
     Dosage: UNK; PULSE THERAPY
     Route: 065
  3. METHYLPREDNISOLONE [Suspect]
     Active Substance: METHYLPREDNISOLONE
     Dosage: UNK; METHYLPREDNISOLONE WAS ADMINISTERED FOLLOWED BY 8 PLASMAPHERESIS
     Route: 065
  4. INTERFERON BETA-1B [Concomitant]
     Active Substance: INTERFERON BETA-1B
     Indication: Relapsing-remitting multiple sclerosis
     Dosage: UNK
     Route: 065

REACTIONS (4)
  - Progressive multifocal leukoencephalopathy [Recovered/Resolved]
  - Immune reconstitution inflammatory syndrome [Recovered/Resolved]
  - JC virus infection [Recovered/Resolved]
  - Infection reactivation [Recovered/Resolved]
